FAERS Safety Report 9167163 (Version 2)
Quarter: 2013Q2

REPORT INFORMATION
  Report Type: Spontaneous
  Country: US (occurrence: US)
  Receive Date: 20130318
  Receipt Date: 20130502
  Transmission Date: 20140414
  Serious: Yes (Other)
  Sender: FDA-Public Use
  Company Number: US-BIOGENIDEC-2013BI023702

PATIENT
  Sex: Male

DRUGS (3)
  1. AVONEX [Suspect]
     Indication: MULTIPLE SCLEROSIS
     Route: 030
     Dates: start: 20050812
  2. NOVANTRONE [Concomitant]
  3. REBIF [Concomitant]

REACTIONS (5)
  - Toxicity to various agents [Unknown]
  - Myocardial infarction [Unknown]
  - Abnormal behaviour [Recovered/Resolved]
  - Cardiac disorder [Unknown]
  - Headache [Recovered/Resolved]
